FAERS Safety Report 6145833-9 (Version None)
Quarter: 2009Q2

REPORT INFORMATION
  Report Type: 
  Country: None (occurrence: None)
  Receive Date: 20090407
  Receipt Date: 20090331
  Transmission Date: 20091009
  Serious: Yes (Other)
  Sender: FDA-Public Use
  Company Number: US-BAYER-200914647NA

PATIENT
  Age: 29 Year
  Sex: Female
  Weight: 61 kg

DRUGS (1)
  1. YAZ [Suspect]
     Indication: CONTRACEPTION
     Dosage: 1 TAB/DAY
     Route: 048
     Dates: start: 20070417, end: 20090220

REACTIONS (3)
  - ARTHRALGIA [None]
  - HYPERKALAEMIA [None]
  - SKIN DISCOLOURATION [None]
